FAERS Safety Report 22146217 (Version 1)
Quarter: 2023Q1

REPORT INFORMATION
  Report Type: Spontaneous
  Country: JP (occurrence: JP)
  Receive Date: 20230328
  Receipt Date: 20230328
  Transmission Date: 20230418
  Serious: Yes (Hospitalization)
  Sender: FDA-Public Use
  Company Number: JP-MYLANLABS-081-0981-M0100851UJ

PATIENT
  Age: 68 Year
  Sex: Female

DRUGS (10)
  1. ATORVASTATIN [Suspect]
     Active Substance: ATORVASTATIN
     Indication: Hyperlipidaemia
     Dosage: DAILY
     Route: 048
     Dates: start: 20010105, end: 20010804
  2. CIMETIDINE [Suspect]
     Active Substance: CIMETIDINE
     Indication: Chronic gastritis
     Route: 048
     Dates: start: 19970621, end: 20010804
  3. EPALRESTAT [Suspect]
     Active Substance: EPALRESTAT
     Indication: Diabetic neuropathy
     Dosage: DAILY
     Route: 048
     Dates: start: 19940409, end: 20010804
  4. BERAPROST SODIUM [Suspect]
     Active Substance: BERAPROST SODIUM
     Indication: Peripheral arterial occlusive disease
     Dosage: DAILY
     Route: 048
     Dates: start: 19970111, end: 20010804
  5. UNSPECIFIED INGREDIENT [Suspect]
     Active Substance: UNSPECIFIED INGREDIENT
     Indication: Retinopathy
     Dosage: DAILY
     Route: 048
     Dates: start: 20010706, end: 20010803
  6. CETRAXATE HYDROCHLORIDE [Suspect]
     Active Substance: CETRAXATE HYDROCHLORIDE
     Indication: Chronic gastritis
     Dosage: DAILY
     Route: 048
     Dates: start: 19970621, end: 20010804
  7. TRICHLORMETHIAZIDE [Suspect]
     Active Substance: TRICHLORMETHIAZIDE
     Indication: Neuropathy peripheral
     Dosage: DAILY
     Route: 048
     Dates: start: 20000120, end: 20010804
  8. ENALAPRIL MALEATE [Suspect]
     Active Substance: ENALAPRIL MALEATE
     Indication: Diabetic nephropathy
     Dosage: DAILY
     Route: 048
     Dates: start: 20010120, end: 20010804
  9. TOCOPHERYL NICOTINATE [Concomitant]
     Active Substance: TOCOPHERYL NICOTINATE, D-.ALPHA.
     Indication: Product used for unknown indication
     Route: 048
     Dates: end: 20010804
  10. METHYLCOBALAMIN [Concomitant]
     Active Substance: METHYLCOBALAMIN
     Indication: Product used for unknown indication
     Route: 048
     Dates: end: 20010804

REACTIONS (2)
  - Diabetes mellitus [Recovered/Resolved]
  - Hepatic function abnormal [Recovered/Resolved]

NARRATIVE: CASE EVENT DATE: 20010803
